FAERS Safety Report 4360617-X (Version None)
Quarter: 2004Q2

REPORT INFORMATION
  Report Type: 
  Country: None (occurrence: None)
  Receive Date: 20040519
  Receipt Date: 20040219
  Transmission Date: 20050107
  Serious: Yes (Other)
  Sender: FDA-Public Use
  Company Number: GB-MERCK-0402GBR00207

PATIENT
  Sex: Female

DRUGS (15)
  1. ACYCLOVIR [Concomitant]
     Route: 065
  2. ALBUTEROL SULFATE [Concomitant]
     Route: 065
  3. AMPHOTERICIN B [Concomitant]
     Route: 065
  4. AZATHIOPRINE [Concomitant]
     Route: 065
  5. CANCIDAS [Suspect]
     Indication: SYSTEMIC MYCOSIS
     Route: 042
  6. COLISTIN [Concomitant]
     Route: 065
  7. HEPARIN [Concomitant]
     Route: 065
  8. HYDROCHLOROTHIAZIDE [Concomitant]
     Route: 065
  9. IMIPENEM [Concomitant]
     Route: 065
  10. LINEZOLID [Concomitant]
     Route: 065
  11. NEOMYCIN [Concomitant]
     Route: 065
  12. NYSTATIN [Concomitant]
     Route: 065
  13. PROPOFOL [Concomitant]
     Route: 065
  14. RANITIDINE [Concomitant]
     Route: 065
  15. TACROLIMUS [Concomitant]
     Route: 065

REACTIONS (1)
  - HYPERPYREXIA [None]
